FAERS Safety Report 25957839 (Version 1)
Quarter: 2025Q4

REPORT INFORMATION
  Report Type: Spontaneous
  Country: US (occurrence: US)
  Receive Date: 20251024
  Receipt Date: 20251024
  Transmission Date: 20260118
  Serious: No
  Sender: GALPHARM INTERNATIONAL
  Company Number: US-PERRIGO-25US005789

PATIENT

DRUGS (1)
  1. NICOTINE POLACRILEX [Suspect]
     Active Substance: NICOTINE
     Indication: Smoking cessation therapy
     Dosage: 4 MG, 8 TIMES DAILY
     Route: 002

REACTIONS (4)
  - Oral discomfort [Unknown]
  - Chemical burn of oral cavity [Unknown]
  - Gingival discomfort [Unknown]
  - Throat irritation [Unknown]
